FAERS Safety Report 13540143 (Version 2)
Quarter: 2017Q2

REPORT INFORMATION
  Report Type: Report from Study
  Country: DE (occurrence: DE)
  Receive Date: 20170512
  Receipt Date: 20170524
  Transmission Date: 20170830
  Serious: Yes (Hospitalization)
  Sender: FDA-Public Use
  Company Number: DE-ROCHE-1932580

PATIENT
  Age: 74 Year
  Sex: Male
  Weight: 81 kg

DRUGS (7)
  1. DUTASTERID [Concomitant]
     Route: 048
  2. VENETOCLAX [Suspect]
     Active Substance: VENETOCLAX
     Indication: CHRONIC LYMPHOCYTIC LEUKAEMIA
     Dosage: THE MOST RECENT DOSE OF VENETOCLAX 400 MG PRIOR TO THE EVENT ONSET WAS ON 03/MAY/2017
     Route: 048
     Dates: start: 20151125, end: 20170504
  3. APIXABAN [Concomitant]
     Active Substance: APIXABAN
     Route: 048
     Dates: end: 20170502
  4. BISOPROLOL [Concomitant]
     Active Substance: BISOPROLOL
     Route: 048
  5. ATORVASTATIN [Concomitant]
     Active Substance: ATORVASTATIN
     Route: 048
  6. OBINUTUZUMAB [Suspect]
     Active Substance: OBINUTUZUMAB
     Indication: CHRONIC LYMPHOCYTIC LEUKAEMIA
     Dosage: THE MOST RECENT DOSE OF OBINUTUZUMAB 1000 MG PRIOR TO THE EVENT ONSET WAS ON 22/FEB/2017
     Route: 042
     Dates: start: 20151022
  7. ALLOPURINOL. [Concomitant]
     Active Substance: ALLOPURINOL
     Route: 048

REACTIONS (2)
  - Carotid artery stenosis [Recovered/Resolved]
  - Carotid arteriosclerosis [Not Recovered/Not Resolved]

NARRATIVE: CASE EVENT DATE: 20170503
